FAERS Safety Report 25681219 (Version 2)
Quarter: 2025Q4

REPORT INFORMATION
  Report Type: Spontaneous
  Country: US (occurrence: US)
  Receive Date: 20250814
  Receipt Date: 20251120
  Transmission Date: 20260117
  Serious: Yes (Other)
  Sender: PFIZER
  Company Number: US-PFIZER INC-PV202500097305

PATIENT
  Age: 69 Year
  Sex: Female

DRUGS (1)
  1. XELJANZ [Suspect]
     Active Substance: TOFACITINIB CITRATE
     Indication: Rheumatoid arthritis
     Dosage: 5 MG, 2X/DAY
     Route: 048
     Dates: start: 2002, end: 20250811

REACTIONS (4)
  - Malignant melanoma [Unknown]
  - Condition aggravated [Not Recovered/Not Resolved]
  - Pelvic mass [Unknown]
  - Pelvic neoplasm [Unknown]

NARRATIVE: CASE EVENT DATE: 20250519
